FAERS Safety Report 11131932 (Version 1)
Quarter: 2015Q2

REPORT INFORMATION
  Report Type: Report from Study
  Country: FR (occurrence: FR)
  Receive Date: 20150522
  Receipt Date: 20150522
  Transmission Date: 20150821
  Serious: Yes (Hospitalization, Other)
  Sender: FDA-Public Use
  Company Number: FR-GLAXOSMITHKLINE-FR2015GSK070198

PATIENT
  Age: 80 Year
  Sex: Male

DRUGS (7)
  1. ELISOR [Concomitant]
     Active Substance: PRAVASTATIN SODIUM
  2. CARDENSIEL [Concomitant]
     Active Substance: BISOPROLOL FUMARATE
  3. PLAVIX [Concomitant]
     Active Substance: CLOPIDOGREL BISULFATE
  4. OMEGA-3-ACID ETHYL ESTERS. [Suspect]
     Active Substance: OMEGA-3-ACID ETHYL ESTERS
     Indication: ISCHAEMIC HEART DISEASE PROPHYLAXIS
     Dosage: UNK
     Dates: start: 20071006, end: 20130306
  5. LASILIX [Concomitant]
     Active Substance: FUROSEMIDE
  6. COVERSYL [Concomitant]
     Active Substance: PERINDOPRIL
  7. KARDEGIC [Concomitant]
     Active Substance: ASPIRIN LYSINE

REACTIONS (2)
  - Respiratory disorder [Unknown]
  - Abscess limb [Unknown]

NARRATIVE: CASE EVENT DATE: 20100713
